FAERS Safety Report 4763238-X (Version None)
Quarter: 2005Q3

REPORT INFORMATION
  Report Type: 
  Country: None (occurrence: None)
  Receive Date: 20050902
  Receipt Date: 20050809
  Transmission Date: 20060218
  Serious: Yes (Other)
  Sender: FDA-Public Use
  Company Number: 215835

PATIENT
  Age: 48 Year
  Sex: Female
  Weight: 96 kg

DRUGS (2)
  1. HERCEPTIN [Suspect]
     Indication: BREAST CANCER
     Dosage: INTRAVENOUS
     Route: 042
     Dates: start: 20040930
  2. DOCETAXEL (DOCETAXEL) [Concomitant]

REACTIONS (4)
  - ATROPHIC VULVOVAGINITIS [None]
  - DRUG EFFECT DECREASED [None]
  - PAIN [None]
  - VAGINAL CANDIDIASIS [None]
